FAERS Safety Report 20409820 (Version 1)
Quarter: 2022Q1

REPORT INFORMATION
  Report Type: Spontaneous
  Country: DE (occurrence: DE)
  Receive Date: 20220201
  Receipt Date: 20220201
  Transmission Date: 20220423
  Serious: Yes (Hospitalization)
  Sender: FDA-Public Use
  Company Number: None

PATIENT
  Age: 72 Year
  Sex: Male
  Weight: 121 kg

DRUGS (14)
  1. FUROSEMIDE [Suspect]
     Active Substance: FUROSEMIDE
     Indication: Product used for unknown indication
     Dosage: 40 MG, 1-1-0-0
     Route: 048
  2. AMIODARONE [Suspect]
     Active Substance: AMIODARONE
     Indication: Product used for unknown indication
     Dosage: 200 MG, 1-0-1-0
     Route: 048
  3. METOPROLOL [Suspect]
     Active Substance: METOPROLOL
     Indication: Product used for unknown indication
     Dosage: 95 MG, 1-0-1-0
     Route: 048
  4. XIPAMIDE [Suspect]
     Active Substance: XIPAMIDE
     Indication: Product used for unknown indication
     Dosage: 20 MG, 0.25-0-0-0
     Route: 048
  5. LEVEMIR [Concomitant]
     Active Substance: INSULIN DETEMIR
     Dosage: 7 IE, 0-0-0-1?1000I.E. 100I.E./ML
     Route: 058
  6. HUMALOG [Concomitant]
     Active Substance: INSULIN LISPRO
     Dosage: 1000E. 100E./ML?ACCORDING TO SCHEME
     Route: 058
  7. XARELTO [Concomitant]
     Active Substance: RIVAROXABAN
     Dosage: 15 MG, 0-0-1-0
     Route: 048
  8. PANTOPRAZOLE [Concomitant]
     Active Substance: PANTOPRAZOLE
     Dosage: 20 MG, 1-0-0-0
     Route: 048
  9. MAGNESIUM [Concomitant]
     Active Substance: MAGNESIUM
     Dosage: 300 MG, 0-1-1-0
     Route: 048
  10. SACUBITRIL\VALSARTAN [Concomitant]
     Active Substance: SACUBITRIL\VALSARTAN
     Dosage: 97/103 MG, 1-0-1-0
     Route: 048
  11. ATORVASTATIN [Concomitant]
     Active Substance: ATORVASTATIN
     Dosage: 20 MG, 0-0-0-1
     Route: 048
  12. POTASSIUM CHLORIDE [Concomitant]
     Active Substance: POTASSIUM CHLORIDE
     Dosage: 2-2-2-2
     Route: 048
  13. SEMAGLUTIDE [Concomitant]
     Active Substance: SEMAGLUTIDE
     Dosage: 1 IU, MONDAYS
     Route: 058
  14. EZETIMIBE [Concomitant]
     Active Substance: EZETIMIBE
     Dosage: 10 MG, 0-0-0-1
     Route: 048

REACTIONS (6)
  - Dizziness [Unknown]
  - Cold sweat [Unknown]
  - Tachycardia [Unknown]
  - Dyspnoea exertional [Unknown]
  - Hypotension [Unknown]
  - Malaise [Unknown]
